FAERS Safety Report 6716962-3 (Version None)
Quarter: 2010Q2

REPORT INFORMATION
  Report Type: 
  Country: None (occurrence: None)
  Receive Date: 20100510
  Receipt Date: 20100503
  Transmission Date: 20101027
  Serious: Yes (Other)
  Sender: FDA-Public Use
  Company Number: US-ASTRAZENECA-2010SE07201

PATIENT
  Age: 20577 Day
  Sex: Male
  Weight: 111.1 kg

DRUGS (3)
  1. ARIMIDEX [Suspect]
     Indication: GYNAECOMASTIA
     Route: 048
     Dates: start: 20100126, end: 20100128
  2. TESTOSTERONE [Concomitant]
  3. ZITHROMAX [Concomitant]

REACTIONS (2)
  - ARTHRITIS [None]
  - LIGAMENT RUPTURE [None]
